FAERS Safety Report 23355808 (Version 2)
Quarter: 2024Q1

REPORT INFORMATION
  Report Type: Report from Study
  Country: US (occurrence: US)
  Receive Date: 20240102
  Receipt Date: 20240206
  Transmission Date: 20240409
  Serious: Yes (Other)
  Sender: FDA-Public Use
  Company Number: US-GILEAD-2023-0656870

PATIENT
  Age: 72 Year
  Sex: Male

DRUGS (1)
  1. EMTRICITABINE\TENOFOVIR [Suspect]
     Active Substance: EMTRICITABINE\TENOFOVIR
     Indication: HIV infection
     Dosage: 225 MG, QD
     Route: 048

REACTIONS (4)
  - Myocardial infarction [Recovered/Resolved]
  - Stress [Not Recovered/Not Resolved]
  - Nervousness [Not Recovered/Not Resolved]
  - Product dose omission issue [Not Recovered/Not Resolved]

NARRATIVE: CASE EVENT DATE: 20240130
